FAERS Safety Report 6692936-6 (Version None)
Quarter: 2010Q2

REPORT INFORMATION
  Report Type: 
  Country: None (occurrence: None)
  Receive Date: 20100422
  Receipt Date: 20100412
  Transmission Date: 20101027
  Serious: Yes (Hospitalization)
  Sender: FDA-Public Use
  Company Number: US-BAXTER-2010BH007964

PATIENT
  Sex: Male

DRUGS (1)
  1. DIANEAL [Suspect]
     Indication: PERITONEAL DIALYSIS
     Route: 033
     Dates: start: 20090101, end: 20100301

REACTIONS (5)
  - ABDOMINAL DISTENSION [None]
  - ANXIETY [None]
  - CLOSTRIDIAL INFECTION [None]
  - DECREASED APPETITE [None]
  - FATIGUE [None]
